FAERS Safety Report 7244044-3 (Version None)
Quarter: 2011Q1

REPORT INFORMATION
  Report Type: 
  Country: None (occurrence: None)
  Receive Date: 20110125
  Receipt Date: 20110107
  Transmission Date: 20110831
  Serious: No
  Sender: FDA-Public Use
  Company Number: US-B.I. PHARMACEUTICALS,INC./RIDGEFIELD-2011-BP-01443BP

PATIENT
  Sex: Female

DRUGS (8)
  1. ESTRACE [Concomitant]
     Indication: HORMONE REPLACEMENT THERAPY
  2. ASTELIN [Concomitant]
     Indication: HYPERSENSITIVITY
  3. VITAMIN B-12 [Concomitant]
     Indication: SUPPLEMENTATION THERAPY
  4. MICARDIS [Suspect]
     Indication: HYPERTENSION
     Dosage: 40 MG
     Route: 048
     Dates: start: 20100101
  5. FISH OIL [Concomitant]
     Indication: SUPPLEMENTATION THERAPY
  6. MULTI-VITAMIN [Concomitant]
     Indication: SUPPLEMENTATION THERAPY
  7. VITAMIN D [Concomitant]
     Indication: SUPPLEMENTATION THERAPY
  8. CALCIUM [Concomitant]
     Indication: SUPPLEMENTATION THERAPY

REACTIONS (4)
  - RHINORRHOEA [None]
  - PRURITUS GENERALISED [None]
  - URTICARIA [None]
  - OEDEMA PERIPHERAL [None]
